FAERS Safety Report 8232771-0 (Version None)
Quarter: 2012Q1

REPORT INFORMATION
  Report Type: 
  Country: None (occurrence: None)
  Receive Date: 20120323
  Receipt Date: 20120319
  Transmission Date: 20120608
  Serious: Yes (Hospitalization)
  Sender: FDA-Public Use
  Company Number: IT-MERCK-1203ITA00036

PATIENT
  Age: 68 Year
  Sex: Female

DRUGS (6)
  1. HYZAAR [Suspect]
     Route: 048
     Dates: start: 20120220, end: 20120220
  2. MOXIFLOXACIN HYDROCHLORIDE [Concomitant]
     Route: 047
  3. DICLOFENAC SODIUM [Concomitant]
     Route: 047
  4. ATORVASTATIN CALCIUM [Concomitant]
     Route: 065
  5. ATENOLOL [Concomitant]
     Route: 048
  6. LEVOTHYROXINE SODIUM [Concomitant]
     Route: 048

REACTIONS (2)
  - ACUTE RESPIRATORY FAILURE [None]
  - PULMONARY OEDEMA [None]
